FAERS Safety Report 7741152-5 (Version None)
Quarter: 2011Q3

REPORT INFORMATION
  Report Type: 
  Country: None (occurrence: None)
  Receive Date: 20110909
  Receipt Date: 20110830
  Transmission Date: 20111222
  Serious: Yes (Hospitalization)
  Sender: FDA-Public Use
  Company Number: US-ACTELION-A-NJ2011-53048

PATIENT

DRUGS (3)
  1. TRACLEER [Suspect]
     Indication: EMBOLISM
     Dosage: UNK
     Route: 048
     Dates: start: 20101123
  2. ADCIRCA [Concomitant]
  3. COUMADIN [Concomitant]

REACTIONS (7)
  - NECK PAIN [None]
  - HEADACHE [None]
  - CHEST PAIN [None]
  - RENAL CYST [None]
  - BACK PAIN [None]
  - MUSCULOSKELETAL PAIN [None]
  - ABDOMINAL PAIN [None]
